FAERS Safety Report 6403377-0 (Version None)
Quarter: 2009Q4

REPORT INFORMATION
  Report Type: 
  Country: None (occurrence: None)
  Receive Date: 20091016
  Receipt Date: 20091007
  Transmission Date: 20100525
  Serious: Yes (Death, Other)
  Sender: FDA-Public Use
  Company Number: GB-ROCHE-661421

PATIENT
  Age: 28 Year
  Sex: Female

DRUGS (1)
  1. ROACCUTANE [Suspect]
     Indication: ACNE
     Route: 065
     Dates: start: 20080401, end: 20080701

REACTIONS (8)
  - ADVERSE REACTION [None]
  - COMPLETED SUICIDE [None]
  - DEPRESSION [None]
  - DRY SKIN [None]
  - FEELING ABNORMAL [None]
  - LIP DRY [None]
  - SCAB [None]
  - SUICIDAL IDEATION [None]
